FAERS Safety Report 9263895 (Version 3)
Quarter: 2013Q2

REPORT INFORMATION
  Report Type: Report from Study
  Country: US (occurrence: US)
  Receive Date: 20130430
  Receipt Date: 20130603
  Transmission Date: 20140414
  Serious: Yes (Death, Hospitalization, Other)
  Sender: FDA-Public Use
  Company Number: US-GENZYME-CAMP-1002889

PATIENT
  Age: 36 Year
  Sex: Male
  Weight: 87.8 kg

DRUGS (14)
  1. CAMPATH [Suspect]
     Indication: CHRONIC GRAFT VERSUS HOST DISEASE
     Dosage: 3 MG,  (DAY 1 OF WEEK 1)
     Route: 042
  2. CAMPATH [Suspect]
     Dosage: 10 MG, DAY 3 OF WEEK 1
     Route: 042
  3. CAMPATH [Suspect]
     Dosage: 30 MG, DAY 5 OF WEEK 1
     Route: 042
  4. CAMPATH [Suspect]
     Dosage: 30 MG, 3X/W
     Route: 042
     Dates: start: 20100628, end: 20100816
  5. CNI [Concomitant]
     Indication: CHRONIC GRAFT VERSUS HOST DISEASE
     Dosage: UNK
     Route: 065
  6. SIROLIMUS [Concomitant]
     Indication: CHRONIC GRAFT VERSUS HOST DISEASE
     Dosage: UNK
     Route: 065
  7. IMATINIB [Concomitant]
     Indication: CHRONIC GRAFT VERSUS HOST DISEASE
     Dosage: UNK
     Route: 065
  8. PREDNISONE [Concomitant]
     Indication: CHRONIC GRAFT VERSUS HOST DISEASE
     Dosage: 30 MG, UNK
     Route: 065
  9. DIPHENHYDRAMINE [Concomitant]
     Indication: PREMEDICATION
     Dosage: UNK
     Route: 065
  10. ACETAMINOPHEN [Concomitant]
     Indication: PREMEDICATION
     Dosage: UNK
     Route: 065
  11. ANTIMICROBIALS [Concomitant]
     Indication: ANTIFUNGAL PROPHYLAXIS
     Dosage: UNK
     Route: 065
  12. ANTIMICROBIALS [Concomitant]
     Indication: ANTIVIRAL PROPHYLAXIS
  13. ANTIMICROBIALS [Concomitant]
     Indication: ANTIVIRAL PROPHYLAXIS
  14. ANTIFUNGALS [Concomitant]
     Indication: PROPHYLAXIS
     Dosage: UNK
     Route: 065

REACTIONS (8)
  - Multi-organ failure [Fatal]
  - Thrombotic microangiopathy [Fatal]
  - Tooth abscess [Recovered/Resolved]
  - Bacteraemia [Fatal]
  - Sepsis [Fatal]
  - Arthritis bacterial [Fatal]
  - Thrombocytopenia [Recovered/Resolved]
  - Neutropenia [Recovered/Resolved]
